FAERS Safety Report 11392553 (Version 1)
Quarter: 2015Q3

REPORT INFORMATION
  Report Type: Spontaneous
  Country: BR (occurrence: BR)
  Receive Date: 20150818
  Receipt Date: 20150818
  Transmission Date: 20151125
  Serious: Yes (Other)
  Sender: FDA-Public Use
  Company Number: BR-ASTRAZENECA-2015SE78031

PATIENT
  Age: 67 Year
  Sex: Female
  Weight: 65 kg

DRUGS (14)
  1. PANTOPRAZOLE [Concomitant]
     Active Substance: PANTOPRAZOLE SODIUM
     Indication: ULCER
     Route: 048
     Dates: start: 2005
  2. CRESTOR [Suspect]
     Active Substance: ROSUVASTATIN CALCIUM
     Indication: BLOOD CHOLESTEROL ABNORMAL
     Route: 048
     Dates: start: 2014
  3. LIPITOR [Concomitant]
     Active Substance: ATORVASTATIN CALCIUM
     Indication: BLOOD CHOLESTEROL ABNORMAL
     Route: 048
     Dates: start: 2014, end: 2014
  4. PANTOPRAZOLE [Concomitant]
     Active Substance: PANTOPRAZOLE SODIUM
     Indication: GASTROOESOPHAGEAL REFLUX DISEASE
     Route: 048
     Dates: start: 2005
  5. CLOPIDOGREL [Concomitant]
     Active Substance: CLOPIDOGREL BISULFATE
     Indication: ANTIPLATELET THERAPY
     Dosage: DAILY
     Route: 048
     Dates: start: 201505
  6. CRESTOR [Suspect]
     Active Substance: ROSUVASTATIN CALCIUM
     Indication: BLOOD CHOLESTEROL ABNORMAL
     Route: 048
     Dates: end: 2014
  7. CALCIUM [Concomitant]
     Active Substance: CALCIUM
     Indication: OSTEOPENIA
     Dosage: DAILY
     Route: 048
     Dates: start: 201501
  8. VITAMIN D [Concomitant]
     Active Substance: CHOLECALCIFEROL
     Indication: OSTEOPENIA
     Dosage: 6 DROPS/DAILY
     Route: 048
     Dates: start: 201501
  9. MICARDIS [Concomitant]
     Active Substance: TELMISARTAN
     Indication: BLOOD PRESSURE MANAGEMENT
     Route: 048
     Dates: start: 201505
  10. HIGROTON [Suspect]
     Active Substance: CHLORTHALIDONE
     Indication: BLOOD PRESSURE MANAGEMENT
     Dosage: NON AZ PRODUCT 25 MG, DAILY
     Route: 048
     Dates: start: 201505
  11. MICARDIS HCT [Suspect]
     Active Substance: HYDROCHLOROTHIAZIDE\TELMISARTAN
     Indication: BLOOD PRESSURE MANAGEMENT
     Route: 048
     Dates: end: 201505
  12. CONCOR [Concomitant]
     Active Substance: BISOPROLOL FUMARATE
     Indication: ARRHYTHMIA
     Route: 048
  13. LIPITOR [Concomitant]
     Active Substance: ATORVASTATIN CALCIUM
     Indication: BLOOD CHOLESTEROL ABNORMAL
     Route: 048
     Dates: start: 2014, end: 2014
  14. PANTOPRAZOLE [Concomitant]
     Active Substance: PANTOPRAZOLE SODIUM
     Indication: GASTRITIS
     Route: 048
     Dates: start: 2005

REACTIONS (17)
  - Adenoma benign [Not Recovered/Not Resolved]
  - Ischaemia [Recovered/Resolved]
  - Gastrooesophageal reflux disease [Not Recovered/Not Resolved]
  - Blood cholesterol increased [Not Recovered/Not Resolved]
  - Lethargy [Recovered/Resolved]
  - Ulcer [Not Recovered/Not Resolved]
  - Gastritis [Not Recovered/Not Resolved]
  - Psychiatric symptom [Recovered/Resolved]
  - Peripheral swelling [Recovered/Resolved]
  - Blood pressure fluctuation [Recovered/Resolved]
  - Bedridden [Recovered/Resolved]
  - Insomnia [Recovered/Resolved]
  - Osteopenia [Not Recovered/Not Resolved]
  - Pain [Recovered/Resolved]
  - Myalgia [Unknown]
  - Arthralgia [Unknown]
  - Vitamin D decreased [Unknown]

NARRATIVE: CASE EVENT DATE: 2005
